FAERS Safety Report 9451487 (Version 1)
Quarter: 2013Q3

REPORT INFORMATION
  Report Type: Spontaneous
  Country: FR (occurrence: FR)
  Receive Date: 20130810
  Receipt Date: 20130810
  Transmission Date: 20140515
  Serious: Yes (Death, Hospitalization)
  Sender: FDA-Public Use
  Company Number: FR-CUBIST PHARMACEUTICAL, INC.-2007S1000550

PATIENT
  Sex: 0

DRUGS (20)
  1. CUBICIN [Suspect]
     Indication: ENDOCARDITIS STAPHYLOCOCCAL
     Dosage: 4 MG/KG, QD
     Route: 042
     Dates: start: 20071127, end: 20071212
  2. CUBICIN [Suspect]
     Dosage: 480 MG, Q24H
     Route: 042
     Dates: start: 20071127, end: 20071212
  3. VANCOMYCIN [Suspect]
     Indication: ENDOCARDITIS STAPHYLOCOCCAL
     Dosage: 750 MG, QID
     Route: 042
     Dates: start: 20071116, end: 20071118
  4. VANCOMYCIN [Suspect]
     Dosage: 850 MG, QID
     Route: 042
     Dates: start: 20071118
  5. VANCOMYCIN [Suspect]
     Dosage: 750 MG, QID
     Route: 042
     Dates: end: 20071124
  6. GENTAMICIN [Suspect]
     Indication: ENDOCARDITIS STAPHYLOCOCCAL
     Dosage: 300 MG, QD
     Route: 042
     Dates: start: 20071116, end: 20071120
  7. GENTAMICIN [Suspect]
     Dosage: 300 MG, Q36H
     Route: 042
     Dates: start: 20071121, end: 20071124
  8. COVERSYL                           /00790703/ [Concomitant]
     Indication: HYPERTENSION
     Dosage: 1 UNK, QD
     Route: 048
     Dates: end: 20071220
  9. HEMIGOXINE [Concomitant]
     Indication: PRODUCT USED FOR UNKNOWN INDICATION
     Dosage: UNK UNK, UNK
  10. AMLOR [Concomitant]
     Indication: PRODUCT USED FOR UNKNOWN INDICATION
     Dosage: UNK UNK, UNK
  11. LEVOTHYROX [Concomitant]
     Indication: PRODUCT USED FOR UNKNOWN INDICATION
     Dosage: 50 UG, UNK
  12. TAHOR [Concomitant]
     Indication: PRODUCT USED FOR UNKNOWN INDICATION
     Dosage: UNK UNK, UNK
  13. AMIODARONE [Concomitant]
     Indication: PRODUCT USED FOR UNKNOWN INDICATION
     Dosage: UNK UNK, UNK
  14. PREVISCAN                          /00789001/ [Concomitant]
     Indication: PRODUCT USED FOR UNKNOWN INDICATION
  15. DIGOXIN [Concomitant]
     Indication: PRODUCT USED FOR UNKNOWN INDICATION
  16. TEMESTA                            /00273201/ [Concomitant]
     Indication: PRODUCT USED FOR UNKNOWN INDICATION
  17. PERMIXON [Concomitant]
     Indication: PRODUCT USED FOR UNKNOWN INDICATION
  18. GAVISCON                           /00237601/ [Concomitant]
     Indication: PRODUCT USED FOR UNKNOWN INDICATION
  19. RIFAMPICIN [Concomitant]
     Indication: PRODUCT USED FOR UNKNOWN INDICATION
  20. OFLOXACIN [Concomitant]
     Indication: PRODUCT USED FOR UNKNOWN INDICATION

REACTIONS (1)
  - Renal failure acute [Not Recovered/Not Resolved]
